FAERS Safety Report 9033566 (Version 2)
Quarter: 2013Q1

REPORT INFORMATION
  Report Type: Spontaneous
  Country: IT (occurrence: IT)
  Receive Date: 20130128
  Receipt Date: 20130131
  Transmission Date: 20140127
  Serious: Yes (Death, Life-Threatening)
  Sender: FDA-Public Use
  Company Number: PHHY2013IT007436

PATIENT
  Sex: Male

DRUGS (2)
  1. TICLOPIDINE [Suspect]
     Indication: CEREBROVASCULAR ACCIDENT
     Dosage: 250 MG DAILY
     Route: 048
     Dates: start: 20110101
  2. COUMADIN [Suspect]
     Indication: CEREBROVASCULAR ACCIDENT
     Dosage: 1 DF, PRN
     Route: 048
     Dates: start: 20110101

REACTIONS (2)
  - Aphasia [Fatal]
  - Depressed level of consciousness [Fatal]
